FAERS Safety Report 6474939-X (Version None)
Quarter: 2009Q4

REPORT INFORMATION
  Report Type: 
  Country: None (occurrence: None)
  Receive Date: 20091204
  Receipt Date: 20091123
  Transmission Date: 20100525
  Serious: Yes (Disabling)
  Sender: FDA-Public Use
  Company Number: CA-WYE-H12434209

PATIENT
  Age: 78 Year
  Sex: Female
  Weight: 86 kg

DRUGS (7)
  1. PANTOPRAZOLE [Suspect]
     Route: 048
     Dates: start: 20050101
  2. CALCIUM PHOSPHATE/CALCIUM SODIUM LACTATE/ERGOCALCIFEROL [Concomitant]
     Dosage: 1 DOSAGE FORM, UNSPECIFIED FREQUENCY
  3. SYNTHROID [Concomitant]
     Dosage: 1 DOSAGE FORM, UNSPECIFIED FREQUENCY
  4. HYDROCHLOROTHIAZIDE [Concomitant]
     Dosage: 1 DOSAGE FORM, UNSPECIFIED FREQUENCY
  5. MESTINON [Suspect]
     Indication: MYASTHENIA GRAVIS
     Route: 048
     Dates: start: 20000101
  6. MESTINON [Suspect]
     Dosage: 0.5 DOSAGE FORMS, UNSPECIFIED FREQUENCY
     Route: 048
     Dates: start: 20040101, end: 20050101
  7. COZAAR [Concomitant]
     Dosage: 1 DOSAGE FORM, UNSPECIFIED FREQUENCY

REACTIONS (6)
  - CONDITION AGGRAVATED [None]
  - DRY SKIN [None]
  - LIP DRY [None]
  - PRURITUS [None]
  - SKIN HYPERPIGMENTATION [None]
  - VISION BLURRED [None]
